FAERS Safety Report 7432010-4 (Version None)
Quarter: 2011Q2

REPORT INFORMATION
  Report Type: 
  Country: None (occurrence: None)
  Receive Date: 20110419
  Receipt Date: 20110419
  Transmission Date: 20111010
  Serious: No
  Sender: FDA-Public Use
  Company Number: None

PATIENT
  Age: 50 Year
  Sex: Male

DRUGS (1)
  1. HUMALOG [Suspect]
     Indication: DIABETES MELLITUS
     Dosage: USE IN INSULIN PUMP PER SLIDING SCALE (UP TO 100 UNITS PER DAY)
     Dates: start: 20110406

REACTIONS (3)
  - BLOOD GLUCOSE INCREASED [None]
  - DEVICE OCCLUSION [None]
  - LIQUID PRODUCT PHYSICAL ISSUE [None]
